FAERS Safety Report 4728016-6 (Version None)
Quarter: 2005Q3

REPORT INFORMATION
  Report Type: 
  Country: None (occurrence: None)
  Receive Date: 20050725
  Receipt Date: 20050406
  Transmission Date: 20060218
  Serious: No
  Sender: FDA-Public Use
  Company Number: USA050494997

PATIENT
  Sex: Male

DRUGS (3)
  1. STRATTERA [Suspect]
     Indication: ATTENTION DEFICIT/HYPERACTIVITY DISORDER
     Dosage: 40 MG/1 DAY
     Dates: start: 20050331
  2. WELLBUTRIN [Concomitant]
  3. PROVIGIL [Concomitant]

REACTIONS (4)
  - DYSURIA [None]
  - GROIN PAIN [None]
  - URINARY HESITATION [None]
  - URINE FLOW DECREASED [None]
